FAERS Safety Report 6026476-4 (Version None)
Quarter: 2009Q1

REPORT INFORMATION
  Report Type: 
  Country: None (occurrence: None)
  Receive Date: 20090102
  Receipt Date: 20081225
  Transmission Date: 20090719
  Serious: Yes (Hospitalization)
  Sender: FDA-Public Use
  Company Number: JP-ABBOTT-08P-087-0494640-00

PATIENT
  Age: 45 Year
  Sex: Male
  Weight: 64 kg

DRUGS (2)
  1. CLARITH TAB [Suspect]
     Indication: NASOPHARYNGITIS
     Route: 048
     Dates: start: 20080930, end: 20081006
  2. LOXONIN [Suspect]
     Indication: NASOPHARYNGITIS
     Route: 048
     Dates: start: 20080930, end: 20081006

REACTIONS (1)
  - PYREXIA [None]
